FAERS Safety Report 9228201 (Version 2)
Quarter: 2013Q2

REPORT INFORMATION
  Report Type: Report from Study
  Country: US (occurrence: US)
  Receive Date: 20130412
  Receipt Date: 20130531
  Transmission Date: 20140414
  Serious: Yes (Other)
  Sender: FDA-Public Use
  Company Number: US-VERTEX PHARMACEUTICALS INC.-2013-004542

PATIENT
  Sex: Male
  Weight: 72 kg

DRUGS (12)
  1. VX-950 (TELAPREVIR) [Suspect]
     Indication: HEPATITIS C
     Dosage: UNK
     Route: 048
     Dates: start: 20120914, end: 201209
  2. PEGASYS [Suspect]
     Indication: HEPATITIS C
     Dosage: UNK
     Dates: start: 20120914, end: 201209
  3. RIBAVIRIN [Suspect]
     Indication: HEPATITIS C
     Dosage: UNK
     Dates: start: 20120914, end: 201209
  4. JANUVIA [Concomitant]
     Dosage: 100 MG, UNK
  5. VIAGRA [Concomitant]
     Dosage: 50 MG, UNK
  6. GLIMEPIRIDE [Concomitant]
     Dosage: 1 MG, UNK
  7. HYDROCHLOROTH [Concomitant]
     Dosage: 25 MG, UNK
  8. METOPROLOL [Concomitant]
     Dosage: 100 MG, UNK
  9. YOHIMBEX [Concomitant]
     Dosage: 500 MG, UNK
  10. FISH OIL [Concomitant]
  11. MULTIVITAMIN [Concomitant]
  12. ASPIRIN [Concomitant]

REACTIONS (9)
  - Hepatic cirrhosis [Unknown]
  - Angina pectoris [Unknown]
  - Chest pain [Unknown]
  - Influenza like illness [Unknown]
  - Bone pain [Unknown]
  - Injection site rash [Recovered/Resolved]
  - Dyspepsia [Unknown]
  - Eye pain [Unknown]
  - Haemorrhoids [Unknown]
